FAERS Safety Report 10060621 (Version 3)
Quarter: 2015Q1

REPORT INFORMATION
  Report Type: Report from Study
  Country: DE (occurrence: DE)
  Receive Date: 20140404
  Receipt Date: 20150205
  Transmission Date: 20150720
  Serious: Yes (Hospitalization)
  Sender: FDA-Public Use
  Company Number: PHHO2014DE004824

PATIENT
  Age: 6 Year
  Sex: Male
  Weight: 21.4 kg

DRUGS (4)
  1. RAD001O [Suspect]
     Active Substance: UNSPECIFIED INGREDIENT
     Indication: ASTROCYTOMA, LOW GRADE
     Dosage: 5 MG, QD
     Dates: start: 20120406
  2. CARBAMAZEPINE. [Concomitant]
     Active Substance: CARBAMAZEPINE
     Indication: EPILEPSY
     Dosage: 6.5 ML, TID
     Dates: start: 20131201
  3. EVEROLIMUS [Suspect]
     Active Substance: EVEROLIMUS
     Dosage: 4.5 MG/M2, QD
     Route: 048
     Dates: start: 20100927, end: 20101024
  4. EVEROLIMUS [Suspect]
     Active Substance: EVEROLIMUS
     Indication: ASTROCYTOMA, LOW GRADE
     Dosage: 4.5 MG/M2, QD
     Route: 048
     Dates: start: 20100803, end: 20100926

REACTIONS (2)
  - Gastritis [Recovered/Resolved]
  - Vomiting [Recovered/Resolved]

NARRATIVE: CASE EVENT DATE: 20140310
